FAERS Safety Report 8990125 (Version 5)
Quarter: 2013Q2

REPORT INFORMATION
  Report Type: Report from Study
  Country: US (occurrence: US)
  Receive Date: 20121228
  Receipt Date: 20130424
  Transmission Date: 20140414
  Serious: Yes (Hospitalization)
  Sender: FDA-Public Use
  Company Number: US-JNJFOC-20121211558

PATIENT
  Age: 16 Year
  Sex: Male
  Weight: 48.3 kg

DRUGS (15)
  1. REMICADE [Suspect]
     Indication: CROHN^S DISEASE
     Route: 042
     Dates: start: 20130411
  2. REMICADE [Suspect]
     Indication: CROHN^S DISEASE
     Route: 042
     Dates: start: 20130213
  3. REMICADE [Suspect]
     Indication: CROHN^S DISEASE
     Route: 042
     Dates: start: 20120914
  4. 5-ASA [Concomitant]
  5. 6-MERCAPTOPURINE [Concomitant]
  6. VITAMIN D3 [Concomitant]
  7. MUTIVITAMINS [Concomitant]
  8. OMEPRAZOLE [Concomitant]
  9. TUMS [Concomitant]
  10. PREDNISONE [Concomitant]
  11. ANTIBIOTICS [Concomitant]
     Indication: INFLAMMATORY BOWEL DISEASE
  12. ZOFRAN [Concomitant]
  13. DILAUDID [Concomitant]
  14. FLAGYL [Concomitant]
  15. CIPROFLOXACIN [Concomitant]

REACTIONS (1)
  - Weight decreased [Recovered/Resolved]
